FAERS Safety Report 7959968-9 (Version None)
Quarter: 2011Q4

REPORT INFORMATION
  Report Type: 
  Country: None (occurrence: None)
  Receive Date: 20111206
  Receipt Date: 20111124
  Transmission Date: 20120403
  Serious: Yes (Other)
  Sender: FDA-Public Use
  Company Number: JP-PFIZER INC-2011282990

PATIENT
  Age: 51 Year
  Sex: Male

DRUGS (7)
  1. HEPARIN [Suspect]
     Indication: ANTICOAGULANT THERAPY
     Route: 041
  2. ARGATROBAN [Suspect]
     Indication: HEPARIN-INDUCED THROMBOCYTOPENIA
     Dosage: UNK
     Route: 051
     Dates: start: 20110723
  3. ARBEKACIN SULFATE [Suspect]
     Indication: ENDOCARDITIS
  4. LINEZOLID [Suspect]
     Indication: ENDOCARDITIS
  5. RIFAMPICIN [Suspect]
     Indication: ENDOCARDITIS
  6. VANCOMYCIN [Suspect]
     Indication: ENDOCARDITIS
  7. WARFARIN SODIUM [Suspect]

REACTIONS (3)
  - PYREXIA [None]
  - EOSINOPHIL COUNT INCREASED [None]
  - HEPATIC FUNCTION ABNORMAL [None]
